FAERS Safety Report 8690899 (Version 2)
Quarter: 2013Q4

REPORT INFORMATION
  Report Type: Report from Study
  Country: US (occurrence: US)
  Receive Date: 20120730
  Receipt Date: 20131022
  Transmission Date: 20140711
  Serious: No
  Sender: FDA-Public Use
  Company Number: US-009507513-1207USA009217

PATIENT
  Age: 57 Year
  Sex: Male

DRUGS (3)
  1. TEMODAR [Suspect]
     Indication: GLIOBLASTOMA MULTIFORME
     Dosage: UNK
  2. TEMODAR [Suspect]
     Dosage: 21 CONSECUTIVE DAYS.
  3. BEVACIZUMAB [Concomitant]
     Indication: GLIOBLASTOMA MULTIFORME
     Dosage: 10 MG/KG, QOW,28 DAY CYCLE

REACTIONS (1)
  - Disease progression [Not Recovered/Not Resolved]
